FAERS Safety Report 13023098 (Version 1)
Quarter: 2016Q4

REPORT INFORMATION
  Report Type: Spontaneous
  Country: US (occurrence: US)
  Receive Date: 20161213
  Receipt Date: 20161213
  Transmission Date: 20170207
  Serious: No
  Sender: FDA-Public Use
  Company Number: US-TEVA-646771USA

PATIENT
  Sex: Female

DRUGS (1)
  1. AZITHROMYCIN ANHYDROUS. [Suspect]
     Active Substance: AZITHROMYCIN ANHYDROUS
     Indication: BACTERIAL INFECTION
     Route: 065
     Dates: start: 20160314, end: 20160321

REACTIONS (6)
  - Abdominal discomfort [Unknown]
  - Pain in extremity [Unknown]
  - Somnolence [Unknown]
  - Myalgia [Unknown]
  - Sleep disorder [Unknown]
  - Fatigue [Unknown]
